FAERS Safety Report 4841561-8 (Version None)
Quarter: 2005Q4

REPORT INFORMATION
  Report Type: 
  Country: None (occurrence: None)
  Receive Date: 20051130
  Receipt Date: 20050823
  Transmission Date: 20060501
  Serious: Yes (Hospitalization)
  Sender: FDA-Public Use
  Company Number: US-GLAXOSMITHKLINE-A0571482A

PATIENT
  Age: 21 Year
  Sex: Female

DRUGS (9)
  1. WELLBUTRIN XL [Suspect]
     Indication: DEPRESSION
     Dosage: 150MG PER DAY
     Route: 048
     Dates: start: 20050615, end: 20050816
  2. ABILIFY [Concomitant]
  3. CYMBALTA [Concomitant]
  4. COZAAR [Concomitant]
  5. FOSAMAX [Concomitant]
  6. PRILOSEC [Concomitant]
  7. PREDNISONE [Concomitant]
  8. KLONOPIN [Concomitant]
  9. CYTOXAN [Concomitant]

REACTIONS (1)
  - CONVULSION [None]
